FAERS Safety Report 5358041-6 (Version None)
Quarter: 2007Q2

REPORT INFORMATION
  Report Type: 
  Country: None (occurrence: None)
  Receive Date: 20070530
  Receipt Date: 20070129
  Transmission Date: 20071010
  Serious: Yes (Other)
  Sender: FDA-Public Use
  Company Number: US200611003380

PATIENT
  Age: 41 Year
  Sex: Female
  Weight: 98.9 kg

DRUGS (7)
  1. ZYPREXA [Suspect]
     Indication: BIPOLAR DISORDER
     Dosage: 10 MG
     Dates: start: 20010701, end: 20030901
  2. SEROQUEL [Concomitant]
  3. RISPERIDONE [Concomitant]
  4. SERZONE [Concomitant]
  5. ZOLOFT [Concomitant]
  6. EFFEXOR [Concomitant]
  7. DEPO-PROVERA SUSPENSION/INJ [Concomitant]

REACTIONS (5)
  - DIABETES MELLITUS [None]
  - DIABETIC COMA [None]
  - DIABETIC KETOACIDOSIS [None]
  - HYPERGLYCAEMIA [None]
  - PANCREATITIS [None]
